FAERS Safety Report 10062202 (Version 1)
Quarter: 2014Q2

REPORT INFORMATION
  Report Type: Spontaneous
  Country: US (occurrence: US)
  Receive Date: 20140407
  Receipt Date: 20140407
  Transmission Date: 20141212
  Serious: Yes (Hospitalization)
  Sender: FDA-Public Use
  Company Number: US-NOVOPROD-405060

PATIENT
  Age: 17 Year
  Sex: Male
  Weight: 72.56 kg

DRUGS (5)
  1. NOVOLOG MIX 70/30 [Suspect]
     Indication: TYPE 1 DIABETES MELLITUS
     Dosage: 40 UNITS IN AM, 40 UNITS IN PM
     Route: 058
     Dates: start: 2013
  2. LISINOPRIL [Concomitant]
     Indication: HYPERTENSION
     Dosage: UNK
     Route: 048
  3. ATENOLOL [Concomitant]
     Indication: HYPERTENSION
     Dosage: UNK
     Route: 048
  4. METFORMIN [Concomitant]
     Indication: TYPE 1 DIABETES MELLITUS
     Dosage: UNK
     Route: 048
  5. NOVOLOG [Concomitant]
     Indication: TYPE 1 DIABETES MELLITUS
     Dosage: SLIDING SCALE, PRN
     Route: 058

REACTIONS (5)
  - Drug dose omission [Recovered/Resolved]
  - Dehydration [Recovered/Resolved]
  - Nasopharyngitis [Recovered/Resolved]
  - Hypertension [Recovered/Resolved]
  - Blood glucose increased [Recovered/Resolved]
